FAERS Safety Report 5719046-6 (Version None)
Quarter: 2008Q2

REPORT INFORMATION
  Report Type: 
  Country: None (occurrence: None)
  Receive Date: 20080423
  Receipt Date: 20080409
  Transmission Date: 20081010
  Serious: Yes (Other)
  Sender: FDA-Public Use
  Company Number: RENA-1000081

PATIENT
  Sex: 0

DRUGS (2)
  1. RENAGEL [Suspect]
     Indication: HYPERPHOSPHATAEMIA
     Dosage: ORAL
     Route: 048
  2. LASIX [Concomitant]

REACTIONS (2)
  - RASH [None]
  - TOXIC SKIN ERUPTION [None]
